FAERS Safety Report 4439671-2 (Version None)
Quarter: 2004Q3

REPORT INFORMATION
  Report Type: 
  Country: None (occurrence: None)
  Receive Date: 20040902
  Receipt Date: 20040820
  Transmission Date: 20050211
  Serious: Yes (Death, Other)
  Sender: FDA-Public Use
  Company Number: 200418256GDDC

PATIENT
  Age: 67 Year
  Sex: Male

DRUGS (8)
  1. GLYBENCLAMIDE [Suspect]
     Indication: DIABETES MELLITUS NON-INSULIN-DEPENDENT
     Route: 048
  2. HUMAN INSULIN SOLUBLE [Concomitant]
     Indication: DIABETES MELLITUS NON-INSULIN-DEPENDENT
     Dosage: DOSE: UNK
  3. BENZYLPENICILLIN [Concomitant]
     Indication: CARBUNCLE
     Dosage: DOSE: 1 MGU
     Route: 042
  4. BENZYLPENICILLIN [Concomitant]
     Indication: STAPHYLOCOCCAL INFECTION
     Dosage: DOSE: 1 MGU
     Route: 042
  5. CLOXACILLIN [Concomitant]
     Indication: CARBUNCLE
     Route: 042
  6. CLOXACILLIN [Concomitant]
     Indication: STAPHYLOCOCCAL INFECTION
     Route: 042
  7. SOFRATULLE [Concomitant]
     Indication: CARBUNCLE
     Dosage: DOSE: UNK
     Route: 061
  8. WELLDORM [Concomitant]
     Indication: SEDATION
     Dosage: DOSE: UNK

REACTIONS (16)
  - BLOOD UREA INCREASED [None]
  - BRONCHOPNEUMONIA [None]
  - DRUG HYPERSENSITIVITY [None]
  - EOSINOPHILIA [None]
  - HAEMOPHILUS INFECTION [None]
  - HAEMORRHAGE [None]
  - HEPATITIS CHOLESTATIC [None]
  - IMPAIRED HEALING [None]
  - JAUNDICE CHOLESTATIC [None]
  - ORBITAL OEDEMA [None]
  - RENAL DISORDER [None]
  - SPLEEN DISORDER [None]
  - STEVENS-JOHNSON SYNDROME [None]
  - SUDDEN DEATH [None]
  - TOXIC SKIN ERUPTION [None]
  - VASCULITIS [None]
